FAERS Safety Report 6636651-3 (Version None)
Quarter: 2010Q1

REPORT INFORMATION
  Report Type: 
  Country: None (occurrence: None)
  Receive Date: 20100316
  Receipt Date: 20100309
  Transmission Date: 20100710
  Serious: Yes (Death, Hospitalization)
  Sender: FDA-Public Use
  Company Number: A0818124A

PATIENT
  Age: 55 Year
  Sex: Female
  Weight: 99.5 kg

DRUGS (11)
  1. AVANDIA [Suspect]
     Indication: DIABETES MELLITUS
     Dosage: 8MG PER DAY
     Route: 048
     Dates: start: 20061201, end: 20070501
  2. ESTRATEST [Concomitant]
  3. HYDROCODONE BITARTRATE AND ACETAMINOPHEN [Concomitant]
  4. INDOCIN [Concomitant]
  5. LYRICA [Concomitant]
  6. MAXZIDE [Concomitant]
  7. SKELAXIN [Concomitant]
  8. TOPROL-XL [Concomitant]
  9. TRICOR [Concomitant]
  10. VYTORIN [Concomitant]
  11. SINGULAIR [Concomitant]

REACTIONS (6)
  - CARDIOPULMONARY FAILURE [None]
  - CEREBROVASCULAR ACCIDENT [None]
  - DECREASED ACTIVITY [None]
  - DEEP VEIN THROMBOSIS [None]
  - MYOCARDIAL ISCHAEMIA [None]
  - PULMONARY EMBOLISM [None]
